FAERS Safety Report 5367719-X (Version None)
Quarter: 2007Q2

REPORT INFORMATION
  Report Type: 
  Country: None (occurrence: None)
  Receive Date: 20070622
  Receipt Date: 20070302
  Transmission Date: 20071010
  Serious: No
  Sender: FDA-Public Use
  Company Number: US-ASTRAZENECA-2007UW04225

PATIENT
  Age: 74 Year
  Sex: Female
  Weight: 39.5 kg

DRUGS (3)
  1. PULMICORT RESPULES [Suspect]
     Indication: CHRONIC OBSTRUCTIVE PULMONARY DISEASE
     Route: 055
     Dates: start: 20070301
  2. NORVASC [Concomitant]
  3. GENERIC RESTORIL [Concomitant]

REACTIONS (1)
  - STOMATITIS [None]
